FAERS Safety Report 23406882 (Version 5)
Quarter: 2024Q3

REPORT INFORMATION
  Report Type: Spontaneous
  Country: US (occurrence: US)
  Receive Date: 20240116
  Receipt Date: 20240828
  Transmission Date: 20241016
  Serious: Yes (Hospitalization, Other)
  Sender: INCYTE
  Company Number: US-INCYTE CORPORATION-2024IN000106

PATIENT

DRUGS (9)
  1. JAKAFI [Suspect]
     Active Substance: RUXOLITINIB
     Indication: Polycythaemia vera
     Dosage: UNK
     Route: 065
  2. JAKAFI [Suspect]
     Active Substance: RUXOLITINIB
     Dosage: 15 MILLIGRAM, BID
     Route: 048
     Dates: start: 20220118
  3. JAKAFI [Suspect]
     Active Substance: RUXOLITINIB
     Dosage: 15 MILLIGRAM, BID
     Route: 048
     Dates: start: 202201
  4. JAKAFI [Suspect]
     Active Substance: RUXOLITINIB
     Dosage: 5MG (TAKE 3 TABLETS BY MOUTH TWICE DAILY, ALTERNATING WITH 4 TABLETS TWICE DAILY)
     Route: 048
     Dates: start: 202201
  5. LEVOFLOXACIN [Suspect]
     Active Substance: LEVOFLOXACIN
     Indication: Product used for unknown indication
     Route: 065
  6. PREDNISONE [Suspect]
     Active Substance: PREDNISONE
     Indication: Product used for unknown indication
     Route: 065
  7. METHENAMINE [Suspect]
     Active Substance: METHENAMINE
     Indication: Urinary tract infection
     Route: 065
  8. IMODIUM [Concomitant]
     Active Substance: LOPERAMIDE HYDROCHLORIDE
     Indication: Product used for unknown indication
     Route: 065
  9. DEMANNOSE [Concomitant]
     Active Substance: DEMANNOSE
     Indication: Urinary tract infection
     Route: 065

REACTIONS (18)
  - Pneumonia [Unknown]
  - Sepsis [Unknown]
  - Bacterial infection [Unknown]
  - Influenza [Unknown]
  - Cataract [Unknown]
  - Pulmonary thrombosis [Unknown]
  - Nasopharyngitis [Unknown]
  - Osteoporosis [Unknown]
  - Immune system disorder [Unknown]
  - Eye inflammation [Unknown]
  - Blepharitis [Unknown]
  - Dry eye [Unknown]
  - Gastrointestinal motility disorder [Unknown]
  - Onychoclasis [Recovered/Resolved]
  - Alopecia [Unknown]
  - Diarrhoea [Unknown]
  - Urinary tract infection [Unknown]
  - Constipation [Recovering/Resolving]

NARRATIVE: CASE EVENT DATE: 20230101
